FAERS Safety Report 10600771 (Version 1)
Quarter: 2014Q4

REPORT INFORMATION
  Report Type: Spontaneous
  Country: US (occurrence: US)
  Receive Date: 20141124
  Receipt Date: 20141124
  Transmission Date: 20150529
  Serious: No
  Sender: FDA-Public Use
  Company Number: US-ASTRAZENECA-2014SE88287

PATIENT
  Age: 82 Year
  Sex: Female

DRUGS (3)
  1. ATACAND [Suspect]
     Active Substance: CANDESARTAN CILEXETIL
     Indication: HYPERTENSION
     Route: 048
  2. ATACAND [Suspect]
     Active Substance: CANDESARTAN CILEXETIL
     Indication: HYPERTENSION
     Route: 048
  3. ALEVE [Concomitant]
     Active Substance: NAPROXEN SODIUM
     Indication: PAIN IN EXTREMITY
     Dosage: AS REQUIRED
     Route: 048

REACTIONS (3)
  - Dizziness [Unknown]
  - Tension [Unknown]
  - Anxiety [Unknown]

NARRATIVE: CASE EVENT DATE: 20141113
